FAERS Safety Report 18920325 (Version 1)
Quarter: 2021Q1

REPORT INFORMATION
  Report Type: Spontaneous
  Country: IT (occurrence: IT)
  Receive Date: 20210222
  Receipt Date: 20210222
  Transmission Date: 20210420
  Serious: Yes (Life-Threatening, Hospitalization, Other)
  Sender: FDA-Public Use
  Company Number: IT-AUROBINDO-AUR-APL-2021-006211

PATIENT
  Age: 20 Year
  Sex: Female
  Weight: 78 kg

DRUGS (1)
  1. PARACETAMOL [Suspect]
     Active Substance: ACETAMINOPHEN
     Indication: PRODUCT USED FOR UNKNOWN INDICATION
     Dosage: 8 GRAM, ONCE A DAY (CHRONIC)
     Route: 048

REACTIONS (9)
  - Hepatotoxicity [Recovering/Resolving]
  - Acute hepatic failure [Recovering/Resolving]
  - Product administration error [Recovering/Resolving]
  - Jaundice [Recovering/Resolving]
  - Accidental overdose [Recovering/Resolving]
  - Hepatic encephalopathy [Recovering/Resolving]
  - Hepatic necrosis [Recovering/Resolving]
  - Hyperbilirubinaemia [Recovering/Resolving]
  - Maternal exposure during pregnancy [Recovered/Resolved]
